FAERS Safety Report 5154041-X (Version None)
Quarter: 2006Q4

REPORT INFORMATION
  Report Type: 
  Country: None (occurrence: None)
  Receive Date: 20061120
  Receipt Date: 20061109
  Transmission Date: 20070319
  Serious: Yes (Other)
  Sender: FDA-Public Use
  Company Number: CO-ROCHE-470698

PATIENT
  Age: 53 Year
  Sex: Female
  Weight: 50 kg

DRUGS (2)
  1. BONIVA [Suspect]
     Indication: OSTEOPENIA
     Dosage: DOSAGE REGIMEN REPORTED AS MONTHLY.
     Route: 048
     Dates: start: 20060801, end: 20060901
  2. CALTRATE [Concomitant]
     Indication: OSTEOPENIA
     Dosage: DRUG REPORTED AS CALTRATE PLUS CHEWABLE. STRENGTH REPORTED AS 600.
     Route: 048
     Dates: start: 20060715, end: 20060915

REACTIONS (1)
  - PARATHYROID TUMOUR BENIGN [None]
